FAERS Safety Report 6232863-1 (Version None)
Quarter: 2009Q2

REPORT INFORMATION
  Report Type: 
  Country: None (occurrence: None)
  Receive Date: 20090617
  Receipt Date: 20090121
  Transmission Date: 20091009
  Serious: No
  Sender: FDA-Public Use
  Company Number: US-ASTRAZENECA-2009UW02111

PATIENT
  Age: 68 Year
  Sex: Female
  Weight: 54.9 kg

DRUGS (10)
  1. FASLODEX [Suspect]
     Indication: BREAST CANCER METASTATIC
     Route: 030
     Dates: start: 20081201
  2. FENTANYL [Concomitant]
     Indication: PAIN
  3. ZOMETA [Concomitant]
  4. ZOVIRAX [Concomitant]
  5. METFORMIN HCL [Concomitant]
  6. GLYBURIDE [Concomitant]
  7. ATENOLOL [Concomitant]
  8. COZAAR [Concomitant]
  9. NORVASC [Concomitant]
  10. TAMOXIFEN CITRATE [Concomitant]

REACTIONS (3)
  - DECREASED APPETITE [None]
  - NAUSEA [None]
  - VOMITING [None]
